FAERS Safety Report 23667688 (Version 3)
Quarter: 2024Q2

REPORT INFORMATION
  Report Type: Report from Study
  Country: US (occurrence: US)
  Receive Date: 20240325
  Receipt Date: 20240412
  Transmission Date: 20240716
  Serious: Yes (Other)
  Sender: FDA-Public Use
  Company Number: US-MYLANLABS-2024M1024427

PATIENT
  Sex: Male
  Weight: 81.64 kg

DRUGS (1)
  1. GLATIRAMER ACETATE [Suspect]
     Active Substance: GLATIRAMER ACETATE
     Indication: Multiple sclerosis
     Dosage: 40 MILLIGRAM, 3XW (THREE TIMES PER WEEK)
     Route: 065

REACTIONS (7)
  - Multiple sclerosis relapse [Unknown]
  - Erectile dysfunction [Not Recovered/Not Resolved]
  - Decreased activity [Unknown]
  - Balance disorder [Unknown]
  - Bradykinesia [Unknown]
  - Gait disturbance [Unknown]
  - Therapeutic product effect incomplete [Unknown]
